FAERS Safety Report 21766141 (Version 1)
Quarter: 2022Q4

REPORT INFORMATION
  Report Type: Report from Study
  Country: US (occurrence: US)
  Receive Date: 20221222
  Receipt Date: 20221222
  Transmission Date: 20230112
  Serious: No
  Sender: FDA-Public Use
  Company Number: US-ABBVIE-22K-163-4387102-00

PATIENT
  Age: 53 Year
  Sex: Male

DRUGS (9)
  1. RINVOQ [Suspect]
     Active Substance: UPADACITINIB
     Indication: Rheumatoid arthritis
     Dosage: TABLET EXTENDED RELEASE 24 HOUR
     Route: 048
     Dates: start: 20220126
  2. METHYLPRED 4 Milligram [Concomitant]
     Indication: Product used for unknown indication
     Route: 048
  3. ASPIRIN LOW 81 Milligram [Concomitant]
     Indication: Product used for unknown indication
     Dosage: ASPIRIN LOW EC
  4. ATORVASTATIN 40 Milligram [Concomitant]
     Indication: Product used for unknown indication
     Route: 048
  5. IBUPROFEN 800 Milligram [Concomitant]
     Indication: Product used for unknown indication
     Route: 048
  6. ENBREL 50 Milligram/Milliliters [Concomitant]
     Indication: Product used for unknown indication
     Dosage: ENBREL SRCLK
  7. ENBREL [Concomitant]
     Active Substance: ETANERCEPT
     Indication: Product used for unknown indication
  8. FOLIC ACID 1 Milligram [Concomitant]
     Indication: Product used for unknown indication
     Route: 048
  9. METHOTREXATE [Concomitant]
     Active Substance: METHOTREXATE
     Indication: Product used for unknown indication

REACTIONS (4)
  - Burning sensation [Not Recovered/Not Resolved]
  - Loss of personal independence in daily activities [Not Recovered/Not Resolved]
  - Pain [Not Recovered/Not Resolved]
  - Rheumatoid arthritis [Not Recovered/Not Resolved]

NARRATIVE: CASE EVENT DATE: 20220501
